FAERS Safety Report 11322516 (Version 1)
Quarter: 2015Q3

REPORT INFORMATION
  Report Type: Spontaneous
  Country: US (occurrence: US)
  Receive Date: 20150730
  Receipt Date: 20150730
  Transmission Date: 20151125
  Serious: No
  Sender: FDA-Public Use
  Company Number: US-PFIZER INC-2015245626

PATIENT
  Sex: Female

DRUGS (7)
  1. MORPHINE SULFATE. [Suspect]
     Active Substance: MORPHINE SULFATE
     Dosage: UNK
  2. FLECAINIDE [Suspect]
     Active Substance: FLECAINIDE
     Dosage: UNK
  3. LISINOPRIL. [Suspect]
     Active Substance: LISINOPRIL
     Dosage: 120 MG, UNK
  4. EFFEXOR XR [Suspect]
     Active Substance: VENLAFAXINE HYDROCHLORIDE
     Dosage: UNK
  5. ATENOLOL. [Suspect]
     Active Substance: ATENOLOL
     Dosage: 25 MG, UNK
  6. OXYCODONE [Suspect]
     Active Substance: OXYCODONE
     Dosage: 30
  7. KLOR-CON [Suspect]
     Active Substance: POTASSIUM CHLORIDE
     Dosage: 10 MEQ, UNK

REACTIONS (1)
  - Drug hypersensitivity [Unknown]
